FAERS Safety Report 5274556-3 (Version None)
Quarter: 2007Q1

REPORT INFORMATION
  Report Type: 
  Country: None (occurrence: None)
  Receive Date: 20070320
  Receipt Date: 20070308
  Transmission Date: 20070707
  Serious: Yes (Hospitalization, Other)
  Sender: FDA-Public Use
  Company Number: GXKR2007FR02398

PATIENT
  Age: 53 Year
  Sex: Female

DRUGS (2)
  1. CARBOPLATIN [Suspect]
     Indication: LUNG ADENOCARCINOMA
     Dosage: 260 MG, UNK
  2. GEMCITABINE [Concomitant]

REACTIONS (12)
  - ABDOMINAL PAIN [None]
  - BLINDNESS CORTICAL [None]
  - BRAIN OEDEMA [None]
  - CONVULSION [None]
  - GRAND MAL CONVULSION [None]
  - HEADACHE [None]
  - HYPOMAGNESAEMIA [None]
  - HYPOPHOSPHATAEMIA [None]
  - NEUTROPENIA [None]
  - PYREXIA [None]
  - REVERSIBLE POSTERIOR LEUKOENCEPHALOPATHY SYNDROME [None]
  - THROMBOCYTOPENIA [None]
